FAERS Safety Report 6723510-0 (Version None)
Quarter: 2010Q2

REPORT INFORMATION
  Report Type: 
  Country: None (occurrence: None)
  Receive Date: 20100513
  Receipt Date: 20100507
  Transmission Date: 20101027
  Serious: Yes (Other)
  Sender: FDA-Public Use
  Company Number: US-BAYER-201021821NA

PATIENT
  Age: 52 Year
  Sex: Female
  Weight: 73 kg

DRUGS (1)
  1. MAGNEVIST [Suspect]
     Indication: NUCLEAR MAGNETIC RESONANCE IMAGING
     Dosage: TOTAL DAILY DOSE: 16 ML  UNIT DOSE: 10 ML
     Route: 042
     Dates: start: 20100507, end: 20100507

REACTIONS (4)
  - DIZZINESS [None]
  - ERYTHEMA [None]
  - FEELING HOT [None]
  - FLUSHING [None]
